FAERS Safety Report 16941896 (Version 3)
Quarter: 2019Q4

REPORT INFORMATION
  Report Type: Spontaneous
  Country: SE (occurrence: SE)
  Receive Date: 20191021
  Receipt Date: 20191121
  Transmission Date: 20200122
  Serious: Yes (Other)
  Sender: FDA-Public Use
  Company Number: SE-REGENERON PHARMACEUTICALS, INC.-2019-60008

PATIENT

DRUGS (2)
  1. EYLEA [Suspect]
     Active Substance: AFLIBERCEPT
     Indication: AGE-RELATED MACULAR DEGENERATION
     Dosage: UNK (5 INJECTIONS IN LEFT EYE, 3 IN RIGHT EYE PRIOR TO THE EVENT; IN TOTAL 4 INJECTIONS IN RIGHT EYE
     Route: 031
     Dates: start: 20160628
  2. EYLEA [Suspect]
     Active Substance: AFLIBERCEPT
     Dosage: UNK (LAST INJECTION)
     Route: 031
     Dates: start: 20191016, end: 20191016

REACTIONS (4)
  - Pain in extremity [Unknown]
  - Thrombosis [Recovering/Resolving]
  - Thrombophlebitis [Unknown]
  - Drug ineffective [Unknown]

NARRATIVE: CASE EVENT DATE: 201910
